FAERS Safety Report 6973671-3 (Version None)
Quarter: 2010Q3

REPORT INFORMATION
  Report Type: 
  Country: None (occurrence: None)
  Receive Date: 20100909
  Receipt Date: 20100902
  Transmission Date: 20110219
  Serious: Yes (Other)
  Sender: FDA-Public Use
  Company Number: US-JNJFOC-20100901255

PATIENT
  Sex: Female

DRUGS (1)
  1. LEVAQUIN [Suspect]
     Indication: PRODUCT USED FOR UNKNOWN INDICATION
     Route: 048

REACTIONS (18)
  - ALOPECIA [None]
  - BLINDNESS [None]
  - HYPERSENSITIVITY [None]
  - INJURY [None]
  - INTERNAL INJURY [None]
  - NEOPLASM [None]
  - ONYCHOMADESIS [None]
  - PRURITUS [None]
  - RASH [None]
  - SCAR [None]
  - SKIN DEPIGMENTATION [None]
  - SKIN DISCOLOURATION [None]
  - SKIN EXFOLIATION [None]
  - STEVENS-JOHNSON SYNDROME [None]
  - SWELLING [None]
  - THERMAL BURN [None]
  - TOXIC EPIDERMAL NECROLYSIS [None]
  - URTICARIA [None]
